FAERS Safety Report 7432057-8 (Version None)
Quarter: 2011Q2

REPORT INFORMATION
  Report Type: 
  Country: None (occurrence: None)
  Receive Date: 20110422
  Receipt Date: 20110413
  Transmission Date: 20111010
  Serious: Yes (Other)
  Sender: FDA-Public Use
  Company Number: US-ELI_LILLY_AND_COMPANY-US201104005408

PATIENT
  Sex: Male

DRUGS (3)
  1. HUMULIN 70/30 [Suspect]
     Dosage: UNK, BID
     Route: 065
     Dates: start: 20050101
  2. HUMULIN 70/30 [Suspect]
     Indication: DIABETES MELLITUS
     Dosage: UNK, BID
     Route: 065
     Dates: start: 20050101
  3. HUMULIN 70/30 [Suspect]
     Dosage: UNK, BID
     Route: 065
     Dates: start: 20050101

REACTIONS (5)
  - BLOOD GLUCOSE INCREASED [None]
  - HEPATIC CIRRHOSIS [None]
  - LIVER DISORDER [None]
  - INSULIN RESISTANCE [None]
  - INJECTION SITE PAIN [None]
